FAERS Safety Report 7269851-2 (Version None)
Quarter: 2011Q1

REPORT INFORMATION
  Report Type: 
  Country: None (occurrence: None)
  Receive Date: 20110125
  Receipt Date: 20110125
  Transmission Date: 20110831
  Serious: Yes (Hospitalization)
  Sender: FDA-Public Use
  Company Number: None

PATIENT
  Sex: Male
  Weight: 94.6 kg

DRUGS (5)
  1. VINCRISTINE SULFATE [Suspect]
     Dosage: 4 MG
  2. LEVAQUIN [Concomitant]
  3. METHOTREXATE [Suspect]
     Dosage: 275 MG
  4. MERCAPTOPURINE [Suspect]
     Dosage: 7200 MG
  5. PREDNISONE [Suspect]
     Dosage: 900 MG

REACTIONS (8)
  - ENCEPHALOPATHY [None]
  - RENAL FAILURE [None]
  - EAR INFECTION [None]
  - METABOLIC ACIDOSIS [None]
  - HYPOGLYCAEMIA [None]
  - TACHYPNOEA [None]
  - COAGULOPATHY [None]
  - ACUTE HEPATIC FAILURE [None]
